FAERS Safety Report 4972070-3 (Version None)
Quarter: 2006Q2

REPORT INFORMATION
  Report Type: 
  Country: None (occurrence: None)
  Receive Date: 20060412
  Receipt Date: 20060412
  Transmission Date: 20061013
  Serious: No
  Sender: FDA-Public Use
  Company Number: None

PATIENT
  Sex: Female

DRUGS (1)
  1. DICYCLOMINE [Suspect]
     Indication: DETOXIFICATION
     Dosage: ITQ6HPRN
     Dates: start: 20060402, end: 20060406

REACTIONS (2)
  - URINARY HESITATION [None]
  - URINARY TRACT INFECTION [None]
